FAERS Safety Report 7890048-7 (Version None)
Quarter: 2011Q4

REPORT INFORMATION
  Report Type: 
  Country: None (occurrence: None)
  Receive Date: 20111103
  Receipt Date: 20111031
  Transmission Date: 20120403
  Serious: Yes (Life-Threatening, Hospitalization, Congenital Anomaly, Other)
  Sender: FDA-Public Use
  Company Number: US-PFIZER INC-2011182516

PATIENT
  Sex: Female
  Weight: 2.98 kg

DRUGS (1)
  1. ZOLOFT [Suspect]
     Dosage: 50 MG, 1X/DAY EVERY NIGHT
     Route: 064
     Dates: start: 20000802

REACTIONS (8)
  - NEONATAL RESPIRATORY DISTRESS SYNDROME [None]
  - TRICUSPID VALVE INCOMPETENCE [None]
  - VENTRICULAR SEPTAL DEFECT [None]
  - PERSISTENT FOETAL CIRCULATION [None]
  - MATERNAL EXPOSURE DURING PREGNANCY [None]
  - ATRIAL SEPTAL DEFECT [None]
  - MITRAL VALVE INCOMPETENCE [None]
  - HEART DISEASE CONGENITAL [None]
